FAERS Safety Report 5804985-8 (Version None)
Quarter: 2008Q3

REPORT INFORMATION
  Report Type: 
  Country: None (occurrence: None)
  Receive Date: 20080702
  Receipt Date: 20071115
  Transmission Date: 20090109
  Serious: Yes (Other)
  Sender: FDA-Public Use
  Company Number: US-WYE-H01329007

PATIENT
  Age: 16 Month
  Sex: Female
  Weight: 9.99 kg

DRUGS (1)
  1. ADVIL [Suspect]
     Dosage: 6 CAPLETS, ORAL
     Route: 047
     Dates: start: 20071113, end: 20071113

REACTIONS (5)
  - ACCIDENTAL DRUG INTAKE BY CHILD [None]
  - ACCIDENTAL OVERDOSE [None]
  - FATIGUE [None]
  - SOMNOLENCE [None]
  - SYNCOPE [None]
